FAERS Safety Report 24176174 (Version 1)
Quarter: 2024Q3

REPORT INFORMATION
  Report Type: Spontaneous
  Country: LT (occurrence: LT)
  Receive Date: 20240806
  Receipt Date: 20240806
  Transmission Date: 20241017
  Serious: Yes (Other)
  Sender: SANDOZ
  Company Number: LT-009507513-2407LTU014075

PATIENT
  Age: 53 Year
  Sex: Female

DRUGS (13)
  1. ONDANSETRON [Suspect]
     Active Substance: ONDANSETRON
     Indication: Product used for unknown indication
     Dosage: UNK
     Route: 042
  2. APREPITANT [Suspect]
     Active Substance: APREPITANT
     Indication: Vomiting
     Dosage: UNK
     Route: 048
  3. TRAMADOL [Suspect]
     Active Substance: TRAMADOL\TRAMADOL HYDROCHLORIDE
     Indication: Product used for unknown indication
     Route: 048
  4. ALPRAZOLAM [Suspect]
     Active Substance: ALPRAZOLAM
     Indication: Product used for unknown indication
     Dosage: UNK
     Route: 048
  5. CISPLATIN [Suspect]
     Active Substance: CISPLATIN
     Indication: Product used for unknown indication
     Dosage: UNK
     Route: 042
  6. FENTANYL [Suspect]
     Active Substance: FENTANYL\FENTANYL CITRATE
     Indication: Product used for unknown indication
     Dosage: UNK
     Route: 042
  7. SHARK CARTILAGE\SHARK, UNSPECIFIED [Concomitant]
     Active Substance: SHARK CARTILAGE\SHARK, UNSPECIFIED
     Indication: Product used for unknown indication
     Route: 048
  8. CYANOCOBALAMIN\FOLIC ACID\PYRIDOXINE [Concomitant]
     Active Substance: CYANOCOBALAMIN\FOLIC ACID\PYRIDOXINE
     Indication: Product used for unknown indication
     Route: 048
  9. COBLAMIN-B12 [Concomitant]
     Indication: Product used for unknown indication
     Route: 048
  10. D MANNITOL FUSO [Concomitant]
     Indication: Product used for unknown indication
     Route: 048
  11. DEXAMETHASONE SODIUM PHOSPHATE [Concomitant]
     Active Substance: DEXAMETHASONE PHOSPHATE\DEXAMETHASONE SODIUM PHOSPHATE
     Indication: Product used for unknown indication
     Route: 042
  12. Metoprolol EG [Concomitant]
     Indication: Product used for unknown indication
     Route: 048
  13. TIANEPTINE [Concomitant]
     Active Substance: TIANEPTINE
     Indication: Product used for unknown indication
     Route: 048

REACTIONS (3)
  - Haemodynamic instability [Unknown]
  - Drug interaction [Unknown]
  - Cardiac arrest [Unknown]
